FAERS Safety Report 6717881-9 (Version None)
Quarter: 2010Q2

REPORT INFORMATION
  Report Type: 
  Country: None (occurrence: None)
  Receive Date: 20100507
  Receipt Date: 20100507
  Transmission Date: 20101027
  Serious: Yes (Hospitalization)
  Sender: FDA-Public Use
  Company Number: None

PATIENT
  Sex: Male
  Weight: 94.5 kg

DRUGS (8)
  1. CYCLOPHOSPHAMIDE [Suspect]
     Dosage: 2100 MG
  2. CYTARABINE [Suspect]
     Dosage: 1264 MG
  3. DEXAMETHASONE [Suspect]
     Dosage: 280 MG
  4. DOXORUBICIN HCL [Suspect]
     Dosage: 157.5 MG
  5. METHOTREXATE [Suspect]
     Dosage: 45 MG
  6. THIOGUANINE [Suspect]
     Dosage: 1680 MG
  7. VINCRISTINE SULFATE [Suspect]
     Dosage: 6 MG
  8. . [Concomitant]

REACTIONS (4)
  - BODY TEMPERATURE INCREASED [None]
  - CHILLS [None]
  - COUGH [None]
  - UPPER RESPIRATORY TRACT INFECTION [None]
